FAERS Safety Report 8392174-5 (Version None)
Quarter: 2012Q2

REPORT INFORMATION
  Report Type: 
  Country: None (occurrence: None)
  Receive Date: 20120529
  Receipt Date: 20120521
  Transmission Date: 20120825
  Serious: Yes (Hospitalization)
  Sender: FDA-Public Use
  Company Number: DE-ROCHE-621597

PATIENT
  Sex: Female
  Weight: 69 kg

DRUGS (2)
  1. MABTHERA [Suspect]
     Dosage: WAS RECEIVED ON 26 NOV 2008 AND 11 DEC 2008.
     Route: 042
     Dates: start: 20081126, end: 20081211
  2. MABTHERA [Suspect]
     Indication: RHEUMATOID ARTHRITIS
     Dosage: WAS RECEIVED ON 11 JUN 2007 AND 25 JUN 2007.
     Route: 042
     Dates: start: 20070611, end: 20070625

REACTIONS (1)
  - MENINGIOMA [None]
